FAERS Safety Report 4781307-5 (Version None)
Quarter: 2005Q3

REPORT INFORMATION
  Report Type: 
  Country: None (occurrence: None)
  Receive Date: 20050928
  Receipt Date: 20050922
  Transmission Date: 20060218
  Serious: Yes (Death)
  Sender: FDA-Public Use
  Company Number: 2005AC01494

PATIENT

DRUGS (1)
  1. QUETIAPINE FUMARATE [Suspect]

REACTIONS (1)
  - DRUG TOXICITY [None]
